FAERS Safety Report 6341326-4 (Version None)
Quarter: 2009Q3

REPORT INFORMATION
  Report Type: 
  Country: None (occurrence: None)
  Receive Date: 20090904
  Receipt Date: 20090810
  Transmission Date: 20100115
  Serious: Yes (Other)
  Sender: FDA-Public Use
  Company Number: PHHY2009IT26049

PATIENT
  Sex: Female

DRUGS (5)
  1. EXJADE [Suspect]
     Dosage: 5 MG/KG, UNK
     Route: 048
     Dates: start: 20040101, end: 20060101
  2. EXJADE [Suspect]
     Dosage: 30 MG/KG, UNK
     Dates: start: 20080201, end: 20090401
  3. EXJADE [Suspect]
     Dosage: 25 MG/KG, UNK
     Dates: start: 20090501
  4. INSULIN [Concomitant]
     Indication: TYPE 1 DIABETES MELLITUS
  5. ASPIRIN [Concomitant]
     Dosage: 0.5 DF, UNK
     Route: 048

REACTIONS (2)
  - CARDIAC IMAGING PROCEDURE ABNORMAL [None]
  - PROTEINURIA [None]
